FAERS Safety Report 18168750 (Version 1)
Quarter: 2020Q3

REPORT INFORMATION
  Report Type: Other
  Country: FR (occurrence: FR)
  Receive Date: 20200819
  Receipt Date: 20200819
  Transmission Date: 20201103
  Serious: Yes (Hospitalization)
  Sender: FDA-Public Use
  Company Number: FR-CADILA HEALTHCARE LIMITED-FR-ZYDUS-049669

PATIENT

DRUGS (6)
  1. TIAPRIDAL [Suspect]
     Active Substance: TIAPRIDE HYDROCHLORIDE
     Indication: WRONG PATIENT RECEIVED PRODUCT
     Dosage: 100 MILLIGRAM, QD
     Route: 048
     Dates: start: 20200128, end: 20200128
  2. NEULEPTIL [PERICIAZINE MESILATE] [Suspect]
     Active Substance: PERICIAZINE
     Indication: WRONG PATIENT RECEIVED PRODUCT
     Dosage: 25 MILLIGRAM, QD
     Route: 048
     Dates: start: 20200128, end: 20200128
  3. DEPAKOTE [Suspect]
     Active Substance: DIVALPROEX SODIUM
     Indication: WRONG PATIENT RECEIVED PRODUCT
     Dosage: 500 MILLIGRAM, QD
     Route: 048
     Dates: start: 20200128, end: 20200128
  4. TAMSULOSIN [Suspect]
     Active Substance: TAMSULOSIN
     Indication: WRONG PATIENT RECEIVED PRODUCT
     Dosage: 0.4 MILLIGRAM, QD
     Route: 048
     Dates: start: 20200128, end: 20200128
  5. LOXAPAC [LOXAPINE] [Suspect]
     Active Substance: LOXAPINE
     Indication: WRONG PATIENT RECEIVED PRODUCT
     Dosage: 125 MILLIGRAM, QD
     Route: 048
     Dates: start: 20200128, end: 20200128
  6. AMISULPRIDE [Suspect]
     Active Substance: AMISULPRIDE
     Indication: WRONG PATIENT RECEIVED PRODUCT
     Dosage: 400 MILLIGRAM, QD
     Route: 048
     Dates: start: 20200128, end: 20200128

REACTIONS (2)
  - Wrong patient received product [Recovered/Resolved]
  - Seizure [Recovered/Resolved]

NARRATIVE: CASE EVENT DATE: 20200128
